FAERS Safety Report 9563869 (Version 1)
Quarter: 2013Q3

REPORT INFORMATION
  Report Type: Spontaneous
  Country: US (occurrence: None)
  Receive Date: 20130926
  Receipt Date: 20130926
  Transmission Date: 20140515
  Serious: Yes (Hospitalization)
  Sender: FDA-Public Use
  Company Number: None

PATIENT
  Age: 76 Year
  Sex: Female
  Weight: 80.74 kg

DRUGS (1)
  1. CIPRO [Suspect]
     Indication: DIVERTICULITIS
     Dosage: 1 PILL, TWICE DAILY

REACTIONS (9)
  - Asthenia [None]
  - Balance disorder [None]
  - Dizziness [None]
  - Eye movement disorder [None]
  - Dysgeusia [None]
  - Dehydration [None]
  - Blood glucose increased [None]
  - Palpitations [None]
  - Nausea [None]
